FAERS Safety Report 16329367 (Version 2)
Quarter: 2019Q2

REPORT INFORMATION
  Report Type: Report from Study
  Country: DE (occurrence: DE)
  Receive Date: 20190520
  Receipt Date: 20190611
  Transmission Date: 20190711
  Serious: Yes (Hospitalization)
  Sender: FDA-Public Use
  Company Number: DE-ROCHE-2317491

PATIENT
  Age: 79 Year
  Sex: Female
  Weight: 56 kg

DRUGS (6)
  1. ATEZOLIZUMAB. [Suspect]
     Active Substance: ATEZOLIZUMAB
     Indication: NON-SMALL CELL LUNG CANCER STAGE IV
     Dosage: DATE OF MOST RECENT DOSE OF ATEZOLIZUMAB PRIOR TO AE ONSET: 15/NOV/2017 AT 13:00
     Route: 042
     Dates: start: 20170124
  2. PACLITAXEL ALBUMIN [Suspect]
     Active Substance: PACLITAXEL
     Indication: NON-SMALL CELL LUNG CANCER STAGE IV
     Dosage: ON DAYS 1, 8, AND 15 OF EACH 21-DAY CYCLE?DATE OF MOST RECENT DOSE OF NAB-PACLITAXEL (85 MG) PRIOR T
     Route: 042
     Dates: start: 20170124
  3. PROTEIN [Concomitant]
     Active Substance: PROTEIN
     Indication: PROPHYLAXIS
     Route: 065
     Dates: start: 20180103, end: 20180111
  4. L-THYROX [Concomitant]
     Active Substance: LEVOTHYROXINE SODIUM
     Indication: HYPOTHYROIDISM
     Route: 065
     Dates: start: 2004
  5. BROMHEXIN [Concomitant]
     Active Substance: BROMHEXINE
     Indication: COUGH
     Route: 065
     Dates: start: 20171230, end: 20180107
  6. CARBOPLATIN. [Suspect]
     Active Substance: CARBOPLATIN
     Indication: NON-SMALL CELL LUNG CANCER STAGE IV
     Dosage: AT AREA UNDER THE CONCENTRATION CURVE (AUC) 6 MILLIGRAMS PER MILLILITER PER MINUTE (MG/ML/MIN) ON DA
     Route: 042
     Dates: start: 20170124

REACTIONS (1)
  - Colitis ulcerative [Recovered/Resolved]

NARRATIVE: CASE EVENT DATE: 20180117
